FAERS Safety Report 4368089-6 (Version None)
Quarter: 2004Q2

REPORT INFORMATION
  Report Type: 
  Country: None (occurrence: None)
  Receive Date: 20040527
  Receipt Date: 20040326
  Transmission Date: 20050107
  Serious: No
  Sender: FDA-Public Use
  Company Number: 205565

PATIENT
  Sex: Female

DRUGS (2)
  1. RAPTIVA [Suspect]
     Indication: PSORIASIS
     Dosage: 0.7ML/0.5ML,SINGLE, SUBCUTANEOUS
     Route: 058
     Dates: start: 20040101, end: 20040101
  2. RAPTIVA [Suspect]
     Indication: PSORIASIS
     Dosage: 0.7ML/0.5ML,SINGLE, SUBCUTANEOUS
     Route: 058
     Dates: start: 20040101

REACTIONS (3)
  - CHILLS [None]
  - INFLUENZA LIKE ILLNESS [None]
  - PYREXIA [None]
